FAERS Safety Report 8015320-1 (Version None)
Quarter: 2011Q4

REPORT INFORMATION
  Report Type: 
  Country: None (occurrence: None)
  Receive Date: 20111223
  Receipt Date: 20111214
  Transmission Date: 20120403
  Serious: Yes (Hospitalization)
  Sender: FDA-Public Use
  Company Number: 2011HGS-002926

PATIENT
  Sex: Female

DRUGS (1)
  1. BENLYSTA [Suspect]
     Dosage: INTRAVENOUS DRIP
     Route: 041
     Dates: start: 20111202

REACTIONS (1)
  - ORGANISING PNEUMONIA [None]
